FAERS Safety Report 9253714 (Version 2)
Quarter: 2013Q2

REPORT INFORMATION
  Report Type: Spontaneous
  Country: US (occurrence: US)
  Receive Date: 20130425
  Receipt Date: 20130506
  Transmission Date: 20140414
  Serious: Yes (Death)
  Sender: FDA-Public Use
  Company Number: US-AMGEN-USASP2013027576

PATIENT
  Age: 85 Year
  Sex: Male
  Weight: 72.18 kg

DRUGS (6)
  1. PROLIA [Suspect]
     Indication: OSTEOPOROSIS
     Dosage: 60 MG, Q6MO
     Dates: start: 20121009
  2. WARFARIN [Concomitant]
     Indication: CARDIAC FAILURE
     Dosage: 2.5 UNK, QD
     Route: 048
     Dates: start: 20120925
  3. FUROSEMIDE [Concomitant]
     Indication: CORONARY ARTERY DISEASE
     Dosage: 40 MG, BID
     Route: 048
     Dates: start: 20120925
  4. METOPROLOL [Concomitant]
     Indication: CORONARY ARTERY DISEASE
     Dosage: 25 MG, BID
     Route: 048
     Dates: start: 20120925
  5. RANITIDINE [Concomitant]
     Dosage: 150 MG, QD
     Route: 048
     Dates: start: 20120925
  6. KLOR CON [Concomitant]
     Indication: CORONARY ARTERY DISEASE
     Dosage: 20 MG, QD
     Route: 048
     Dates: start: 20120925

REACTIONS (2)
  - Pelvic fracture [Fatal]
  - Fall [Fatal]
